FAERS Safety Report 5628077-6 (Version None)
Quarter: 2008Q1

REPORT INFORMATION
  Report Type: 
  Country: None (occurrence: None)
  Receive Date: 20080215
  Receipt Date: 20080205
  Transmission Date: 20080703
  Serious: Yes (Life-Threatening, Hospitalization)
  Sender: FDA-Public Use
  Company Number: JP-AMGEN-US257562

PATIENT
  Age: 74 Year
  Sex: Male
  Weight: 53 kg

DRUGS (13)
  1. ENBREL [Suspect]
     Indication: RHEUMATOID ARTHRITIS
     Route: 058
     Dates: start: 20070209, end: 20071206
  2. RHEUMATREX [Suspect]
     Indication: RHEUMATOID ARTHRITIS
     Dosage: UNSPECIFIED
     Route: 048
     Dates: start: 20070227, end: 20071210
  3. BUCILLAMINE [Concomitant]
     Indication: RHEUMATOID ARTHRITIS
     Route: 048
     Dates: start: 20070227
  4. FOLIAMIN [Concomitant]
     Route: 048
     Dates: start: 20070227, end: 20071210
  5. SELBEX [Concomitant]
     Route: 048
     Dates: start: 20070227
  6. NEOISCOTIN [Concomitant]
     Route: 048
     Dates: start: 20070227
  7. BETAMETHASONE [Concomitant]
     Indication: RHEUMATOID ARTHRITIS
     Route: 048
     Dates: start: 20070227
  8. ASPIRIN [Concomitant]
     Indication: ANGINA PECTORIS
     Route: 048
     Dates: start: 20070227
  9. ITOROL [Concomitant]
     Indication: ANGINA PECTORIS
     Route: 048
     Dates: start: 20070227
  10. TICLOPIDINE HCL [Concomitant]
     Indication: ANGINA PECTORIS
     Route: 048
     Dates: start: 20070227
  11. SIGMART [Concomitant]
     Indication: ANGINA PECTORIS
     Route: 048
     Dates: start: 20070227
  12. ISOSORBIDE DINITRATE [Concomitant]
     Indication: ANGINA PECTORIS
     Route: 048
     Dates: start: 20070227
  13. PYDOXAL [Concomitant]
     Route: 048
     Dates: start: 20070227

REACTIONS (3)
  - ORAL HERPES [None]
  - PNEUMOCYSTIS JIROVECI PNEUMONIA [None]
  - RENAL DISORDER [None]
